FAERS Safety Report 5914372-X (Version None)
Quarter: 2008Q4

REPORT INFORMATION
  Report Type: 
  Country: None (occurrence: None)
  Receive Date: 20081007
  Receipt Date: 20080930
  Transmission Date: 20090506
  Serious: Yes (Other)
  Sender: FDA-Public Use
  Company Number: SPV1-2008-01968

PATIENT
  Age: 14 Year
  Sex: Female
  Weight: 49.4 kg

DRUGS (1)
  1. VYVANSE [Suspect]
     Indication: ATTENTION DEFICIT/HYPERACTIVITY DISORDER
     Dosage: 40 MG, 1X/DAY;QD;ORAL
     Route: 048
     Dates: end: 20080818

REACTIONS (3)
  - DEPRESSION [None]
  - OFF LABEL USE [None]
  - SUICIDAL IDEATION [None]
